FAERS Safety Report 20581314 (Version 3)
Quarter: 2022Q2

REPORT INFORMATION
  Report Type: Spontaneous
  Country: CN (occurrence: CN)
  Receive Date: 20220311
  Receipt Date: 20220506
  Transmission Date: 20220721
  Serious: Yes (Hospitalization, Other)
  Sender: FDA-Public Use
  Company Number: CN-ASPEN-GLO2022CN001164

PATIENT

DRUGS (9)
  1. LEUKERAN [Suspect]
     Active Substance: CHLORAMBUCIL
     Indication: Chronic lymphocytic leukaemia
     Dosage: 28 MG, QD
     Route: 048
     Dates: start: 20211110, end: 20211110
  2. LEUKERAN [Suspect]
     Active Substance: CHLORAMBUCIL
     Dosage: 28 MG, QD
     Route: 048
     Dates: start: 20211124, end: 20211124
  3. LEUKERAN [Suspect]
     Active Substance: CHLORAMBUCIL
     Dosage: 28 MG, QD
     Route: 048
     Dates: start: 20211207, end: 20211207
  4. LEUKERAN [Suspect]
     Active Substance: CHLORAMBUCIL
     Dosage: 28 MG, QD
     Route: 048
     Dates: start: 20211220, end: 20211220
  5. LEUKERAN [Suspect]
     Active Substance: CHLORAMBUCIL
     Dosage: 28 MG, QD
     Route: 048
     Dates: start: 20220105, end: 20220105
  6. LEUKERAN [Suspect]
     Active Substance: CHLORAMBUCIL
     Dosage: 28 MG, QD
     Route: 048
     Dates: start: 20220117, end: 20220117
  7. LEUKERAN [Suspect]
     Active Substance: CHLORAMBUCIL
     Dosage: 28 MG, QD
     Route: 048
     Dates: start: 20220127, end: 20220127
  8. LEUKERAN [Suspect]
     Active Substance: CHLORAMBUCIL
     Dosage: 28 MG, QD
     Route: 048
     Dates: start: 20220214, end: 20220214
  9. LEUKERAN [Suspect]
     Active Substance: CHLORAMBUCIL
     Dosage: 26 MG, ONCE, PO
     Route: 048
     Dates: start: 20220402, end: 20220402

REACTIONS (2)
  - Pneumonia bacterial [Recovered/Resolved]
  - Pneumonia fungal [Recovered/Resolved]

NARRATIVE: CASE EVENT DATE: 20220219
